FAERS Safety Report 4559466-9 (Version None)
Quarter: 2005Q1

REPORT INFORMATION
  Report Type: 
  Country: None (occurrence: None)
  Receive Date: 20050119
  Receipt Date: 20050107
  Transmission Date: 20050727
  Serious: Yes (Hospitalization)
  Sender: FDA-Public Use
  Company Number: 049-0981-990201

PATIENT
  Age: 63 Year
  Sex: Male
  Weight: 93.2 kg

DRUGS (6)
  1. ATORVASTATIN           (ATORVASTATIN) [Suspect]
     Indication: CORONARY ARTERY DISEASE
     Dosage: SEE IMAGE
     Route: 048
     Dates: start: 19981125, end: 19990117
  2. ATORVASTATIN           (ATORVASTATIN) [Suspect]
     Indication: CORONARY ARTERY DISEASE
     Dosage: SEE IMAGE
     Route: 048
     Dates: start: 19990118, end: 19990511
  3. ASPIRIN [Concomitant]
  4. NITROGLYCERIN [Concomitant]
  5. DILTIAZEM [Concomitant]
  6. QUINAPRIL HCL [Concomitant]

REACTIONS (3)
  - ANAEMIA POSTOPERATIVE [None]
  - BILE DUCT STONE [None]
  - SYNCOPE [None]
